FAERS Safety Report 8305101-3 (Version None)
Quarter: 2012Q2

REPORT INFORMATION
  Report Type: 
  Country: None (occurrence: None)
  Receive Date: 20120423
  Receipt Date: 20120413
  Transmission Date: 20120825
  Serious: Yes (Hospitalization)
  Sender: FDA-Public Use
  Company Number: JP-ASTRAZENECA-2012SE05911

PATIENT
  Age: 64 Year
  Sex: Female
  Weight: 55 kg

DRUGS (4)
  1. PYDOXAL [Suspect]
     Indication: NEUROPATHY PERIPHERAL
     Route: 048
     Dates: start: 20110526
  2. LIVALO [Suspect]
     Indication: HYPERCHOLESTEROLAEMIA
     Route: 048
     Dates: start: 20090811
  3. PROTECADIN [Suspect]
     Indication: GASTRIC ULCER
     Route: 048
     Dates: start: 20110602
  4. FASLODEX [Suspect]
     Indication: BREAST CANCER
     Dosage: UNKNOWN
     Route: 030
     Dates: start: 20111205

REACTIONS (2)
  - HEPATIC FUNCTION ABNORMAL [None]
  - DECREASED APPETITE [None]
